FAERS Safety Report 11131657 (Version 1)
Quarter: 2015Q2

REPORT INFORMATION
  Report Type: Spontaneous
  Country: US (occurrence: US)
  Receive Date: 20150522
  Receipt Date: 20150522
  Transmission Date: 20150821
  Serious: Yes (Other)
  Sender: FDA-Public Use
  Company Number: US-SA-2015SA065867

PATIENT
  Sex: Female

DRUGS (3)
  1. REVLIMID [Suspect]
     Active Substance: LENALIDOMIDE
     Indication: BONE MARROW TRANSPLANT
     Dosage: 14 DAYS ON AND 14 DAYS OFF
     Route: 065
  2. FABRAZYME [Interacting]
     Active Substance: AGALSIDASE BETA
     Route: 041
  3. VELCADE [Suspect]
     Active Substance: BORTEZOMIB
     Indication: BONE MARROW TRANSPLANT
     Dosage: ON MONDAYS AND THURSDAYS
     Route: 065

REACTIONS (3)
  - Plasma cell myeloma [Unknown]
  - Diarrhoea [Unknown]
  - Drug interaction [Unknown]

NARRATIVE: CASE EVENT DATE: 20150430
